FAERS Safety Report 8556336-6 (Version None)
Quarter: 2012Q3

REPORT INFORMATION
  Report Type: 
  Country: None (occurrence: None)
  Receive Date: 20120719
  Receipt Date: 20120705
  Transmission Date: 20120928
  Serious: Yes (Hospitalization, Other)
  Sender: FDA-Public Use
  Company Number: 2012MA007564

PATIENT
  Age: 69 Year
  Sex: Female
  Weight: 57 kg

DRUGS (2)
  1. GEMCITABINE HYDROCHLORIDE [Suspect]
     Indication: URINARY TRACT CARCINOMA IN SITU
     Dosage: 1000 MG/MM^2; DAY 1;
  2. CISPLATIN [Suspect]
     Indication: URINARY TRACT CARCINOMA IN SITU
     Dosage: 56 MG/M**2;DAY 2;

REACTIONS (13)
  - FATIGUE [None]
  - VAGINAL DISCHARGE [None]
  - RED BLOOD CELL COUNT DECREASED [None]
  - BLOOD ALKALINE PHOSPHATASE INCREASED [None]
  - ABDOMINAL DISCOMFORT [None]
  - ANAEMIA [None]
  - ALTERED STATE OF CONSCIOUSNESS [None]
  - RENAL SALT-WASTING SYNDROME [None]
  - METASTASIS [None]
  - HAEMATOCRIT DECREASED [None]
  - PELVIC DISCOMFORT [None]
  - RENAL IMPAIRMENT [None]
  - HAEMOGLOBIN DECREASED [None]
